FAERS Safety Report 4352271-8 (Version None)
Quarter: 2004Q2

REPORT INFORMATION
  Report Type: 
  Country: None (occurrence: None)
  Receive Date: 20040420
  Receipt Date: 20031017
  Transmission Date: 20050107
  Serious: Yes (Hospitalization)
  Sender: FDA-Public Use
  Company Number: 2003UW13570

PATIENT
  Sex: Female

DRUGS (1)
  1. PRILOSEC [Suspect]
     Indication: GASTROOESOPHAGEAL REFLUX DISEASE
     Dosage: 1 QD PO
     Route: 048
     Dates: start: 20030918, end: 20031009

REACTIONS (4)
  - ANAPHYLACTIC SHOCK [None]
  - ERYTHEMA [None]
  - SWELLING [None]
  - URTICARIA [None]
